FAERS Safety Report 16630011 (Version 3)
Quarter: 2021Q1

REPORT INFORMATION
  Report Type: Report from Study
  Country: CA (occurrence: CA)
  Receive Date: 20190725
  Receipt Date: 20210226
  Transmission Date: 20210419
  Serious: Yes (Hospitalization, Other)
  Sender: FDA-Public Use
  Company Number: CA-PFIZER INC-2019311751

PATIENT
  Age: 45 Year
  Sex: Male
  Weight: 102 kg

DRUGS (15)
  1. FRAGMIN [Suspect]
     Active Substance: DALTEPARIN SODIUM
     Dosage: UNK
     Route: 042
  2. FRAGMIN [Suspect]
     Active Substance: DALTEPARIN SODIUM
     Dosage: UNK
     Route: 065
  3. APO?SULFATRIM [Concomitant]
     Active Substance: SULFAMETHOXAZOLE\TRIMETHOPRIM
     Dosage: UNK
     Route: 065
  4. DECADRON [Concomitant]
     Active Substance: DEXAMETHASONE
     Dosage: UNK
     Route: 065
  5. ATORVASTATIN CALCIUM. [Suspect]
     Active Substance: ATORVASTATIN CALCIUM
     Indication: BRAIN NEOPLASM MALIGNANT
     Dosage: UNK
     Route: 042
  6. PANTOPRAZOLE [Concomitant]
     Active Substance: PANTOPRAZOLE
     Dosage: UNK
     Route: 065
  7. AVASTIN [Suspect]
     Active Substance: BEVACIZUMAB
     Indication: BRAIN NEOPLASM MALIGNANT
     Dosage: 1080 MG, 1X/2 WEEKS
     Route: 042
  8. TEMODAL [Suspect]
     Active Substance: TEMOZOLOMIDE
     Indication: BRAIN NEOPLASM MALIGNANT
     Dosage: UNK
     Route: 048
  9. METHYLPREDNISOLONE. [Concomitant]
     Active Substance: METHYLPREDNISOLONE
     Indication: PREMEDICATION
     Dosage: 100 MG, UNK
     Route: 042
     Dates: start: 20160617
  10. ACETAMINOPHEN. [Concomitant]
     Active Substance: ACETAMINOPHEN
     Indication: PREMEDICATION
     Dosage: 650 MG, UNK
     Route: 048
     Dates: start: 20160617
  11. AVASTIN [Suspect]
     Active Substance: BEVACIZUMAB
     Indication: BRAIN NEOPLASM MALIGNANT
     Dosage: 1080 MG, 1X/2 WEEKS
     Route: 042
     Dates: start: 20160617
  12. AVASTIN [Suspect]
     Active Substance: BEVACIZUMAB
     Dosage: 1080 MG, 1X/2 WEEKS
     Route: 042
     Dates: end: 20161014
  13. KEPPRA [Concomitant]
     Active Substance: LEVETIRACETAM
     Dosage: UNK
     Route: 065
  14. AVASTIN [Suspect]
     Active Substance: BEVACIZUMAB
     Dosage: 1080 MG, 1X/2 WEEKS
     Route: 042
  15. DIPHENHYDRAMINE. [Concomitant]
     Active Substance: DIPHENHYDRAMINE
     Indication: PREMEDICATION
     Dosage: 50 MG, UNK
     Route: 048
     Dates: start: 20160617

REACTIONS (41)
  - Abdominal distension [Not Recovered/Not Resolved]
  - Dizziness [Recovered/Resolved]
  - Fatigue [Not Recovered/Not Resolved]
  - Peripheral swelling [Recovered/Resolved]
  - Blood pressure diastolic increased [Unknown]
  - Ear discomfort [Unknown]
  - Eosinophil count decreased [Not Recovered/Not Resolved]
  - Heart rate increased [Unknown]
  - Mean cell volume increased [Recovered/Resolved]
  - Alanine aminotransferase increased [Unknown]
  - Epistaxis [Recovered/Resolved]
  - Rash [Not Recovered/Not Resolved]
  - Taste disorder [Not Recovered/Not Resolved]
  - Lymphocyte count decreased [Not Recovered/Not Resolved]
  - Lymphocyte percentage decreased [Not Recovered/Not Resolved]
  - Dyspnoea exertional [Not Recovered/Not Resolved]
  - Haematocrit decreased [Not Recovered/Not Resolved]
  - Injection site haemorrhage [Unknown]
  - Body temperature decreased [Unknown]
  - Hypotension [Unknown]
  - Micturition frequency decreased [Unknown]
  - Neutrophil percentage increased [Not Recovered/Not Resolved]
  - Peripheral swelling [Unknown]
  - Platelet count decreased [Recovered/Resolved]
  - Device occlusion [Unknown]
  - Vertigo [Recovered/Resolved]
  - Paraesthesia [Unknown]
  - Dehydration [Unknown]
  - Heart rate irregular [Unknown]
  - Red blood cell count decreased [Not Recovered/Not Resolved]
  - Joint swelling [Unknown]
  - Coagulopathy [Not Recovered/Not Resolved]
  - Swelling [Unknown]
  - Urobilinogen urine increased [Unknown]
  - Decreased appetite [Unknown]
  - Increased tendency to bruise [Not Recovered/Not Resolved]
  - Blood pressure fluctuation [Unknown]
  - Eosinophil percentage decreased [Not Recovered/Not Resolved]
  - Haemoglobin decreased [Unknown]
  - Intracranial pressure increased [Not Recovered/Not Resolved]
  - Weight decreased [Unknown]

NARRATIVE: CASE EVENT DATE: 20160617
